FAERS Safety Report 6921024-6 (Version None)
Quarter: 2010Q3

REPORT INFORMATION
  Report Type: 
  Country: None (occurrence: None)
  Receive Date: 20100812
  Receipt Date: 20100806
  Transmission Date: 20110219
  Serious: Yes (Other)
  Sender: FDA-Public Use
  Company Number: VE-PFIZER INC-2010078181

PATIENT
  Age: 56 Year
  Sex: Female

DRUGS (4)
  1. TAFIL [Suspect]
     Indication: ANXIETY
     Dosage: 1 MG, 1X/DAY
     Route: 048
     Dates: start: 20080101
  2. TAFIL [Suspect]
     Indication: DEPRESSION
  3. VENLAFAXINE [Concomitant]
     Indication: DEPRESSION
     Dosage: 75 MG, 1X/DAY
     Route: 048
     Dates: start: 20090101
  4. GINKO BILOBA [Concomitant]
     Indication: CEREBROVASCULAR DISORDER
     Dosage: 40 MG, 1X/DAY
     Route: 048
     Dates: start: 20100101

REACTIONS (5)
  - ANXIETY [None]
  - HYPERTENSION [None]
  - INSOMNIA [None]
  - RESTLESSNESS [None]
  - TACHYCARDIA [None]
